FAERS Safety Report 19579958 (Version 1)
Quarter: 2021Q3

REPORT INFORMATION
  Report Type: Spontaneous
  Country: US (occurrence: US)
  Receive Date: 20210719
  Receipt Date: 20210719
  Transmission Date: 20211014
  Serious: No
  Sender: FDA-Public Use
  Company Number: US-NOVOPROD-784940

PATIENT
  Sex: Male

DRUGS (1)
  1. OZEMPIC [Suspect]
     Active Substance: SEMAGLUTIDE
     Indication: TYPE 2 DIABETES MELLITUS
     Dosage: 0.25 MG, QW
     Route: 058
     Dates: start: 20201009

REACTIONS (6)
  - Nausea [Recovered/Resolved]
  - Retching [Recovered/Resolved]
  - Inappropriate schedule of product administration [Recovered/Resolved]
  - Constipation [Recovered/Resolved]
  - Product prescribing error [Unknown]
  - Product confusion [Recovered/Resolved]

NARRATIVE: CASE EVENT DATE: 20201005
